FAERS Safety Report 17413226 (Version 2)
Quarter: 2020Q2

REPORT INFORMATION
  Report Type: Report from Study
  Country: KR (occurrence: KR)
  Receive Date: 20200213
  Receipt Date: 20200513
  Transmission Date: 20200713
  Serious: Yes (Hospitalization)
  Sender: FDA-Public Use
  Company Number: KR-GLAXOSMITHKLINE-KP2020GSK021946

PATIENT
  Age: 67 Year
  Sex: Male
  Weight: 54 kg

DRUGS (23)
  1. ERDOS [Concomitant]
     Active Substance: ERDOSTEINE
     Indication: CHRONIC OBSTRUCTIVE PULMONARY DISEASE
     Dosage: 300 MG, BID
     Dates: start: 20130107
  2. MEPTIN [Concomitant]
     Active Substance: PROCATEROL HYDROCHLORIDE
     Indication: CHRONIC OBSTRUCTIVE PULMONARY DISEASE
     Dosage: 25 UG, BID
     Dates: start: 20130527
  3. TOPISOL LOTION [Concomitant]
     Dosage: PRN
     Dates: start: 20160817
  4. DIOVAN [Concomitant]
     Active Substance: VALSARTAN
     Indication: HYPERTENSION
     Dosage: 40 MG, QD
     Dates: start: 20161019
  5. G-SOREN [Concomitant]
     Indication: GASTRITIS
     Dosage: 60 MG, BID
     Dates: start: 20160530
  6. FLUTICASONE FUROATE + VILANTEROL TRIFENATATE [Suspect]
     Active Substance: FLUTICASONE FUROATE\VILANTEROL TRIFENATATE
     Indication: CHRONIC OBSTRUCTIVE PULMONARY DISEASE
     Dosage: 1 PUFF(S), QD (100/25 MCG)
     Route: 055
     Dates: start: 20160817
  7. LIPITOR [Concomitant]
     Active Substance: ATORVASTATIN CALCIUM
     Indication: HYPERLIPIDAEMIA
     Dosage: 20 MG, QD
     Dates: start: 20151111
  8. PENIRAMIN INJECTION [Concomitant]
     Dosage: 4 MG, QD
     Dates: start: 20160817, end: 20160817
  9. SPIRIVA RESPIMAT [Concomitant]
     Active Substance: TIOTROPIUM BROMIDE
     Indication: CHRONIC OBSTRUCTIVE PULMONARY DISEASE
     Dosage: 2 PUFF(S), QD
     Dates: start: 20130107
  10. SINGULAIR [Concomitant]
     Active Substance: MONTELUKAST SODIUM
     Indication: CHRONIC OBSTRUCTIVE PULMONARY DISEASE
     Dosage: 10 MG, QD
     Dates: start: 20110715
  11. ASIMA [Concomitant]
     Active Substance: DOXOFYLLINE
     Indication: CHRONIC OBSTRUCTIVE PULMONARY DISEASE
     Dosage: 400 MG, BID
     Dates: start: 20130107
  12. VESICARE [Concomitant]
     Active Substance: SOLIFENACIN SUCCINATE
     Indication: BENIGN PROSTATIC HYPERPLASIA
     Dosage: 5 MG, QD
     Dates: start: 20121207
  13. SYNATURA [Concomitant]
     Indication: CHRONIC OBSTRUCTIVE PULMONARY DISEASE
     Dosage: 15 ML, BID
     Dates: start: 20161109
  14. ASPIRIN. [Concomitant]
     Active Substance: ASPIRIN
     Indication: ANGINA PECTORIS
     Dosage: 100 MG, QD
     Dates: start: 20151021
  15. CONCOR [Concomitant]
     Active Substance: BISOPROLOL FUMARATE
     Indication: ANGINA PECTORIS
     Dosage: 1.25 MG, QD
     Dates: start: 20161019
  16. DEXILANT [Concomitant]
     Active Substance: DEXLANSOPRAZOLE
     Indication: GASTRITIS PROPHYLAXIS
     Dosage: 30 MG, QD
     Dates: start: 20151111
  17. EBASTEL TABLET [Concomitant]
     Dosage: 10 MG, QD
     Dates: start: 20160530
  18. NITROGLYCERIN. [Concomitant]
     Active Substance: NITROGLYCERIN
     Indication: ANGINA PECTORIS
     Dosage: .6 MG, PRN
     Dates: start: 20110715
  19. SOLETON [Concomitant]
     Active Substance: ZALTOPROFEN
     Indication: CHRONIC OBSTRUCTIVE PULMONARY DISEASE
     Dosage: 80 MG, BID
     Dates: start: 20161109
  20. PLAVIX [Concomitant]
     Active Substance: CLOPIDOGREL BISULFATE
     Indication: ANGINA PECTORIS
     Dosage: 75 MG, QD
     Dates: start: 20151021
  21. REMICUT SR [Concomitant]
     Dosage: 1 MG, BID
     Dates: start: 20160530
  22. PENIRAMIN INJECTION [Concomitant]
     Dosage: 4 MG, QD
     Dates: start: 20161221, end: 20161221
  23. STOGAR [Concomitant]
     Active Substance: LAFUTIDINE
     Indication: GASTRITIS
     Dosage: 10 MG, BID
     Dates: start: 20130527

REACTIONS (1)
  - Chronic obstructive pulmonary disease [Recovered/Resolved]

NARRATIVE: CASE EVENT DATE: 20170129
